FAERS Safety Report 11540794 (Version 1)
Quarter: 2015Q3

REPORT INFORMATION
  Report Type: Spontaneous
  Country: US (occurrence: US)
  Receive Date: 20150923
  Receipt Date: 20150923
  Transmission Date: 20151125
  Serious: No
  Sender: FDA-Public Use
  Company Number: PHEH2015US018711

PATIENT
  Age: 62 Year
  Sex: Female
  Weight: 56.69 kg

DRUGS (4)
  1. TOBRAMYCIN. [Suspect]
     Active Substance: TOBRAMYCIN
     Dosage: 300 MG, BID
     Route: 055
     Dates: start: 20150919
  2. TOBRAMYCIN. [Suspect]
     Active Substance: TOBRAMYCIN
     Indication: LUNG INFECTION PSEUDOMONAL
     Dosage: 300 MG, BID
     Route: 055
     Dates: start: 20150725
  3. CALCIUM [Concomitant]
     Active Substance: CALCIUM
     Indication: VITAMIN SUPPLEMENTATION
     Dosage: UNK
     Route: 065
  4. VITAMIN D [Concomitant]
     Active Substance: CHOLECALCIFEROL
     Indication: VITAMIN SUPPLEMENTATION
     Dosage: UNK
     Route: 065

REACTIONS (2)
  - Pruritus [Unknown]
  - Alopecia [Unknown]

NARRATIVE: CASE EVENT DATE: 201508
